FAERS Safety Report 9083997 (Version 1)
Quarter: 2013Q1

REPORT INFORMATION
  Report Type: Report from Study
  Country: US (occurrence: US)
  Receive Date: 20130131
  Receipt Date: 20130131
  Transmission Date: 20140127
  Serious: Yes (Other)
  Sender: FDA-Public Use
  Company Number: US-ABBOTT-12P-163-1014692-00

PATIENT
  Age: 38 Year
  Sex: Female

DRUGS (7)
  1. HUMIRA [Suspect]
     Indication: COLITIS ULCERATIVE
     Dosage: LOADING DOSE
     Dates: start: 20121026, end: 20121026
  2. HUMIRA [Suspect]
     Dosage: LOADING DOSE
     Dates: start: 20121109, end: 20121109
  3. HUMIRA [Suspect]
  4. AZATHIOPRINE [Concomitant]
     Indication: ULCER
  5. CHLORTAB [Concomitant]
     Indication: HYPERSENSITIVITY
  6. SINGULAIR [Concomitant]
     Indication: HYPERSENSITIVITY
  7. DULERA [Concomitant]
     Indication: HYPERSENSITIVITY

REACTIONS (1)
  - Nephrolithiasis [Recovering/Resolving]
